FAERS Safety Report 8824626 (Version 2)
Quarter: 2012Q4

REPORT INFORMATION
  Report Type: 
  Country: BR (occurrence: BR)
  Receive Date: 20121004
  Receipt Date: 20121031
  Transmission Date: 20130627
  Serious: Yes (Hospitalization, Other)
  Sender: FDA-Public Use
  Company Number: PHHY2012BR085185

PATIENT
  Sex: Female
  Weight: 118 kg

DRUGS (8)
  1. FORASEQ [Suspect]
     Indication: ASTHMA
     Dosage: 1 DF, daily
  2. FORASEQ [Suspect]
     Dosage: 2 DF, daily
  3. OMEPRAZOLE [Concomitant]
     Indication: LIVER DISORDER
     Dosage: 20 mg, BID
     Route: 048
     Dates: start: 2010
  4. OMEPRAZOLE [Concomitant]
     Indication: DYSPEPSIA
  5. OMEPRAZOLE [Concomitant]
     Indication: DYSPEPSIA
  6. OMEPRAZOLE [Concomitant]
     Indication: NAUSEA
  7. OMEPRAZOLE [Concomitant]
     Indication: HELICOBACTER INFECTION
  8. OMEPRAZOLE [Concomitant]
     Indication: HIATUS HERNIA

REACTIONS (18)
  - Thrombosis [Not Recovered/Not Resolved]
  - Oedema peripheral [Recovered/Resolved]
  - Pain in extremity [Recovered/Resolved]
  - Depression [Recovering/Resolving]
  - Asthma [Not Recovered/Not Resolved]
  - Wheezing [Not Recovered/Not Resolved]
  - Dyspnoea [Not Recovered/Not Resolved]
  - Helicobacter infection [Recovered/Resolved]
  - Liver disorder [Not Recovered/Not Resolved]
  - Oral discomfort [Not Recovered/Not Resolved]
  - Dyspepsia [Recovered/Resolved]
  - Tooth erosion [Recovered/Resolved]
  - Tooth discolouration [Recovered/Resolved]
  - Dental caries [Recovered/Resolved]
  - Movement disorder [Not Recovered/Not Resolved]
  - Hiatus hernia [Recovered/Resolved]
  - Dysgeusia [Not Recovered/Not Resolved]
  - Nausea [Recovered/Resolved]
